FAERS Safety Report 8117876-7 (Version None)
Quarter: 2012Q1

REPORT INFORMATION
  Report Type: 
  Country: None (occurrence: None)
  Receive Date: 20120207
  Receipt Date: 20120126
  Transmission Date: 20120608
  Serious: No
  Sender: FDA-Public Use
  Company Number: PHHY2011AR73740

PATIENT
  Sex: Female

DRUGS (6)
  1. ANTIINFLAMMATORY/ANTIRHEUMATIC PRODUCTS [Concomitant]
     Indication: ARTHRITIS
  2. AMLODIPINE [Concomitant]
  3. DIURETICS [Concomitant]
  4. PAINKILLERS [Concomitant]
     Indication: ARTHRITIS
  5. DIOVAN [Suspect]
     Indication: HYPERTENSION
     Dosage: 320 MG, DAILY
     Dates: start: 20100101
  6. CORTICOSTEROIDS [Concomitant]
     Indication: ARTHRITIS

REACTIONS (8)
  - HYPOACUSIS [None]
  - BLOOD PRESSURE INCREASED [None]
  - DRUG INEFFECTIVE [None]
  - NAUSEA [None]
  - HEADACHE [None]
  - ARTHRITIS [None]
  - PAIN [None]
  - BLOOD PRESSURE FLUCTUATION [None]
